FAERS Safety Report 8604668 (Version 4)
Quarter: 2013Q1

REPORT INFORMATION
  Report Type: Report from Study
  Country: JP (occurrence: JP)
  Receive Date: 20120608
  Receipt Date: 20130308
  Transmission Date: 20140127
  Serious: Yes (Death, Other)
  Sender: FDA-Public Use
  Company Number: JP-ASTELLAS-2012US005287

PATIENT
  Age: 56 Year
  Sex: Female
  Weight: 65 kg

DRUGS (18)
  1. ERLOTINIB TABLET [Suspect]
     Indication: ADENOCARCINOMA PANCREAS
     Dosage: 100 MG, UID/QD
     Route: 048
     Dates: start: 20120329, end: 20120507
  2. ERLOTINIB TABLET [Suspect]
     Dosage: 100 MG, UID/QD
     Route: 048
     Dates: start: 20120524
  3. GEMCITABINE [Suspect]
     Indication: ADENOCARCINOMA PANCREAS
     Dosage: 1000 MG/M2, WEEKLY
     Route: 041
     Dates: start: 20120329, end: 20120502
  4. GEMCITABINE [Suspect]
     Dosage: 1000 MG/M2, WEEKLY
     Route: 041
     Dates: start: 20120524
  5. OXYCONTIN [Concomitant]
     Indication: PRODUCT USED FOR UNKNOWN INDICATION
     Dosage: 20 MG, UID/QD
     Route: 048
     Dates: start: 20120503
  6. MOBIC [Concomitant]
     Indication: PRODUCT USED FOR UNKNOWN INDICATION
     Dosage: 10 MG, UID/QD
     Route: 048
     Dates: start: 20120523
  7. MUCOSTA [Concomitant]
     Indication: PRODUCT USED FOR UNKNOWN INDICATION
     Dosage: 100 MG, UID/QD
     Route: 048
     Dates: end: 20120523
  8. ALOSENN [Concomitant]
     Indication: PRODUCT USED FOR UNKNOWN INDICATION
     Dosage: 0.5 G, UID/QD
     Route: 048
     Dates: start: 20120403, end: 20120416
  9. DUROTEP [Concomitant]
     Indication: PRODUCT USED FOR UNKNOWN INDICATION
     Dosage: 2.1 MG, 3XWEEKLY
     Route: 062
     Dates: start: 20120504, end: 20120506
  10. DUROTEP [Concomitant]
     Dosage: 4.2 MG, 3XWEEKLY
     Route: 062
     Dates: start: 20120507
  11. MORPHINE HYDROCHLORIDE [Concomitant]
     Indication: ADENOCARCINOMA PANCREAS
     Dosage: 10 MG, UID/QD
     Route: 042
     Dates: start: 20120522
  12. MORPHINE HYDROCHLORIDE [Concomitant]
     Dosage: 20 MG, UID/QD
     Route: 042
     Dates: start: 20120531, end: 20120531
  13. MORPHINE HYDROCHLORIDE [Concomitant]
     Dosage: 40 MG, UID/QD
     Route: 042
     Dates: start: 20120601, end: 20120604
  14. MORPHINE HYDROCHLORIDE [Concomitant]
     Dosage: 60 MG, UID/QD
     Route: 042
     Dates: start: 20120605, end: 20120606
  15. MORPHINE HYDROCHLORIDE [Concomitant]
     Dosage: 90 MG, UID/QD
     Route: 042
     Dates: start: 20120607, end: 20120607
  16. MORPHINE HYDROCHLORIDE [Concomitant]
     Dosage: 140 MG, UID/QD
     Route: 042
     Dates: start: 20120608, end: 20120612
  17. MORPHINE HYDROCHLORIDE [Concomitant]
     Dosage: 200 MG, UID/QD
     Route: 042
     Dates: start: 20120613, end: 20120615
  18. MORPHINE HYDROCHLORIDE [Concomitant]
     Dosage: 400 MG, UID/QD
     Route: 042
     Dates: start: 20120616

REACTIONS (9)
  - Adenocarcinoma pancreas [Fatal]
  - Platelet count decreased [Recovered/Resolved]
  - Anaemia [Recovered/Resolved]
  - Sepsis [Recovered/Resolved]
  - Device related infection [Recovered/Resolved]
  - Malnutrition [Unknown]
  - Rash [Recovered/Resolved]
  - Diarrhoea [Recovered/Resolved]
  - Decreased appetite [Unknown]
